FAERS Safety Report 12803802 (Version 1)
Quarter: 2016Q4

REPORT INFORMATION
  Report Type: Spontaneous
  Country: JP (occurrence: JP)
  Receive Date: 20161003
  Receipt Date: 20161003
  Transmission Date: 20170207
  Serious: Yes (Other)
  Sender: FDA-Public Use
  Company Number: JP-SA-2016SA178728

PATIENT
  Age: 62 Year
  Sex: Female

DRUGS (9)
  1. VECTIBIX [Concomitant]
     Active Substance: PANITUMUMAB
     Route: 042
  2. IRINOTECAN HYDROCHLORIDE. [Concomitant]
     Active Substance: IRINOTECAN HYDROCHLORIDE
     Route: 041
     Dates: start: 201206, end: 201206
  3. ELPLAT [Suspect]
     Active Substance: OXALIPLATIN
     Indication: RECTAL CANCER
     Route: 042
  4. ELPLAT [Suspect]
     Active Substance: OXALIPLATIN
     Indication: RECTAL CANCER
     Route: 042
     Dates: start: 201201, end: 201201
  5. 5 FU [Concomitant]
     Active Substance: FLUOROURACIL
     Route: 042
     Dates: start: 201201
  6. LEVOFOLINATE [Suspect]
     Active Substance: LEVOLEUCOVORIN CALCIUM
     Route: 042
     Dates: start: 201201, end: 201309
  7. IRINOTECAN HYDROCHLORIDE. [Concomitant]
     Active Substance: IRINOTECAN HYDROCHLORIDE
     Route: 041
     Dates: start: 201109, end: 201109
  8. AVASTIN [Concomitant]
     Active Substance: BEVACIZUMAB
     Route: 042
     Dates: start: 201206, end: 201206
  9. AVASTIN [Concomitant]
     Active Substance: BEVACIZUMAB
     Route: 042

REACTIONS (4)
  - Dermatitis acneiform [Unknown]
  - Neuropathy peripheral [Unknown]
  - Neutrophil count decreased [Unknown]
  - Paronychia [Unknown]
